FAERS Safety Report 14768530 (Version 2)
Quarter: 2018Q2

REPORT INFORMATION
  Report Type: Spontaneous
  Country: IT (occurrence: IT)
  Receive Date: 20180417
  Receipt Date: 20180530
  Transmission Date: 20180711
  Serious: Yes (Hospitalization)
  Sender: FDA-Public Use
  Company Number: IT-TEVA-2018-IT-880732

PATIENT
  Age: 46 Year
  Sex: Male
  Weight: 165 kg

DRUGS (3)
  1. HOLOXAN 1 G POLVERE PER SOLUZIONE PER INFUSIONE [Concomitant]
     Indication: LIPOSARCOMA
     Route: 042
     Dates: start: 20171209, end: 20171210
  2. EPIRUBICINA TEVA 2 MG/ML SOLUZIONE INIETTABILE O PER INFUSIONE [Suspect]
     Active Substance: EPIRUBICIN
     Indication: LIPOSARCOMA
     Route: 042
     Dates: start: 20171209, end: 20171210
  3. EPIRUBICINA TEVA 2 MG/ML SOLUZIONE INIETTABILE O PER INFUSIONE [Suspect]
     Active Substance: EPIRUBICIN
     Route: 042
     Dates: start: 20171209, end: 20171210

REACTIONS (3)
  - Dyspnoea [Recovered/Resolved with Sequelae]
  - Hypertension [Recovered/Resolved with Sequelae]
  - Bradycardia [Recovered/Resolved with Sequelae]

NARRATIVE: CASE EVENT DATE: 20171209
